FAERS Safety Report 4680599-0 (Version None)
Quarter: 2005Q2

REPORT INFORMATION
  Report Type: 
  Country: None (occurrence: None)
  Receive Date: 20050531
  Receipt Date: 20041021
  Transmission Date: 20051028
  Serious: Yes (Hospitalization)
  Sender: FDA-Public Use
  Company Number: 2004091412

PATIENT
  Age: 46 Year
  Sex: Male

DRUGS (2)
  1. SOLU-MEDROL [Suspect]
     Indication: MULTIPLE SCLEROSIS
     Dosage: UNK (1000 MG, UNKNOWN), INTRAVENOUS
     Route: 042
     Dates: start: 20040720
  2. INTERFERON BETA (INTERFERON BETA) [Concomitant]

REACTIONS (1)
  - HYPERGLYCAEMIA [None]
